FAERS Safety Report 4809724-5 (Version None)
Quarter: 2005Q4

REPORT INFORMATION
  Report Type: 
  Country: None (occurrence: None)
  Receive Date: 20051024
  Receipt Date: 20051010
  Transmission Date: 20060501
  Serious: Yes (Death)
  Sender: FDA-Public Use
  Company Number: HQWYE048117OCT05

PATIENT

DRUGS (1)
  1. RAPAMUNE [Suspect]
     Indication: STEM CELL TRANSPLANT

REACTIONS (1)
  - THROMBOTIC MICROANGIOPATHY [None]
